FAERS Safety Report 6766455-2 (Version None)
Quarter: 2010Q2

REPORT INFORMATION
  Report Type: 
  Country: None (occurrence: None)
  Receive Date: 20100611
  Receipt Date: 20100601
  Transmission Date: 20101027
  Serious: Yes (Other)
  Sender: FDA-Public Use
  Company Number: US-PFIZER INC-2010068922

PATIENT
  Sex: Female
  Weight: 53.52 kg

DRUGS (5)
  1. LYRICA [Suspect]
     Indication: NEURALGIA
     Dosage: 75 MG, 1X/DAY
     Route: 048
     Dates: start: 20100525, end: 20100525
  2. AMARYL [Concomitant]
     Dosage: 4 MG, UNK
  3. GLUCOPHAGE [Concomitant]
     Dosage: 800 MG, UNK
  4. PROCARDIA XL [Concomitant]
     Dosage: 30 MG, UNK
  5. LIPITOR [Concomitant]
     Dosage: UNK

REACTIONS (3)
  - DIZZINESS [None]
  - HEART RATE INCREASED [None]
  - HYPERTENSION [None]
